FAERS Safety Report 25942478 (Version 2)
Quarter: 2025Q4

REPORT INFORMATION
  Report Type: Spontaneous
  Country: US (occurrence: US)
  Receive Date: 20251021
  Receipt Date: 20251024
  Transmission Date: 20260118
  Serious: No
  Sender: NOVARTIS
  Company Number: US-002147023-NVSC2025US159347

PATIENT
  Age: 74 Year
  Sex: Female

DRUGS (3)
  1. LUTATHERA [Suspect]
     Active Substance: LUTETIUM OXODOTREOTIDE LU-177
     Indication: Carcinoid syndrome
     Dosage: UNK (IV RADIATION)
     Route: 042
  2. LUTATHERA [Suspect]
     Active Substance: LUTETIUM OXODOTREOTIDE LU-177
     Dosage: UNK (IV RADIATION)
     Route: 042
     Dates: start: 202508
  3. XERMELO [Suspect]
     Active Substance: TELOTRISTAT ETHYL
     Indication: Carcinoid syndrome
     Dosage: 250 MG, BID
     Route: 048
     Dates: start: 20250623

REACTIONS (3)
  - White blood cell count abnormal [Unknown]
  - Product prescribing error [Unknown]
  - Intentional product use issue [Unknown]
